FAERS Safety Report 7440996-7 (Version None)
Quarter: 2011Q2

REPORT INFORMATION
  Report Type: 
  Country: None (occurrence: None)
  Receive Date: 20110427
  Receipt Date: 20090619
  Transmission Date: 20111010
  Serious: Yes (Other)
  Sender: FDA-Public Use
  Company Number: DE-GENENTECH-317515

PATIENT
  Age: 51 Year
  Sex: Male

DRUGS (1)
  1. LUCENTIS [Suspect]
     Indication: MACULAR DEGENERATION
     Route: 031

REACTIONS (6)
  - RETINAL SCAR [None]
  - EYE HAEMORRHAGE [None]
  - INTRAOCULAR PRESSURE INCREASED [None]
  - VISUAL ACUITY REDUCED [None]
  - CARDIAC DISORDER [None]
  - LUNG DISORDER [None]
